FAERS Safety Report 5635945-8 (Version None)
Quarter: 2008Q1

REPORT INFORMATION
  Report Type: 
  Country: None (occurrence: None)
  Receive Date: 20080224
  Receipt Date: 20080218
  Transmission Date: 20080703
  Serious: Yes (Hospitalization)
  Sender: FDA-Public Use
  Company Number: PHBS2007JP08711

PATIENT
  Age: 70 Year

DRUGS (5)
  1. COMTAN [Suspect]
     Indication: PARKINSON'S DISEASE
     Dosage: 700 MG/D
     Route: 048
     Dates: start: 20070521, end: 20070523
  2. PRAMIPEXOLE DIHYDROCHLORIDE [Concomitant]
     Route: 048
  3. SYMMETREL [Concomitant]
     Route: 048
  4. DOPS [Concomitant]
     Route: 048
  5. CARBIDOPA AND LEVODOPA [Concomitant]
     Route: 048

REACTIONS (3)
  - FACE OEDEMA [None]
  - GENERALISED OEDEMA [None]
  - OEDEMA PERIPHERAL [None]
